FAERS Safety Report 8193511-7 (Version None)
Quarter: 2012Q1

REPORT INFORMATION
  Report Type: 
  Country: None (occurrence: None)
  Receive Date: 20120308
  Receipt Date: 20120306
  Transmission Date: 20120608
  Serious: Yes (Hospitalization)
  Sender: FDA-Public Use
  Company Number: BR-ROCHE-1040277

PATIENT
  Sex: Male
  Weight: 77.5 kg

DRUGS (2)
  1. PRELONE [Concomitant]
     Route: 065
  2. MABTHERA [Suspect]
     Indication: RHEUMATOID ARTHRITIS
     Route: 042
     Dates: start: 20100128

REACTIONS (1)
  - FRACTURE [None]
